FAERS Safety Report 5389982-1 (Version None)
Quarter: 2007Q3

REPORT INFORMATION
  Report Type: 
  Country: None (occurrence: None)
  Receive Date: 20070716
  Receipt Date: 20070716
  Transmission Date: 20080115
  Serious: No
  Sender: FDA-Public Use
  Company Number: None

PATIENT
  Age: 72 Year
  Sex: Female
  Weight: 75 kg

DRUGS (2)
  1. INVANZ [Suspect]
     Indication: ABDOMINAL WALL ABSCESS
     Dosage: 1 GM Q24H IV
     Route: 042
     Dates: start: 20070630, end: 20070705
  2. INVANZ [Suspect]
     Indication: CELLULITIS
     Dosage: 1 GM Q24H IV
     Route: 042
     Dates: start: 20070630, end: 20070705

REACTIONS (1)
  - RASH ERYTHEMATOUS [None]
